FAERS Safety Report 21832316 (Version 1)
Quarter: 2023Q1

REPORT INFORMATION
  Report Type: Spontaneous
  Country: JP (occurrence: JP)
  Receive Date: 20230106
  Receipt Date: 20230106
  Transmission Date: 20230418
  Serious: Yes (Other)
  Sender: FDA-Public Use
  Company Number: JP-SANTEN-AER-00864

PATIENT
  Age: 73 Year
  Sex: Female

DRUGS (2)
  1. OMIDENEPAG ISOPROPYL [Suspect]
     Active Substance: OMIDENEPAG ISOPROPYL
     Indication: Normal tension glaucoma
     Dosage: QD LEFT EYE
     Route: 047
     Dates: start: 20220105, end: 20220618
  2. HYALURONATE SODIUM [Concomitant]
     Active Substance: HYALURONATE SODIUM
     Indication: Dry eye
     Dosage: BOTH EYES
     Route: 047
     Dates: start: 20100828, end: 20220620

REACTIONS (4)
  - Cataract [Unknown]
  - Iritis [Recovered/Resolved]
  - Uveitis [Recovered/Resolved]
  - Punctate keratitis [Recovered/Resolved]

NARRATIVE: CASE EVENT DATE: 20220726
